FAERS Safety Report 5799061-7 (Version None)
Quarter: 2008Q3

REPORT INFORMATION
  Report Type: 
  Country: None (occurrence: None)
  Receive Date: 20080702
  Receipt Date: 20080219
  Transmission Date: 20090109
  Serious: No
  Sender: FDA-Public Use
  Company Number: US-BOEHRINGER INGELHEIM GMBH, GERMANY-2007-BP-23815BP

PATIENT
  Sex: Male
  Weight: 91 kg

DRUGS (1)
  1. MIRAPEX [Suspect]
     Indication: DEPRESSION
     Dosage: 0.5 MG 3X DAILY TO 1.5 MG 3X A DAY
     Dates: start: 20050329, end: 20070101

REACTIONS (6)
  - HYPERPHAGIA [None]
  - HYPERSEXUALITY [None]
  - LIBIDO INCREASED [None]
  - OBSESSIVE-COMPULSIVE DISORDER [None]
  - PATHOLOGICAL GAMBLING [None]
  - WEIGHT INCREASED [None]
